FAERS Safety Report 7059619-4 (Version None)
Quarter: 2010Q4

REPORT INFORMATION
  Report Type: 
  Country: None (occurrence: None)
  Receive Date: 20101025
  Receipt Date: 20101013
  Transmission Date: 20110411
  Serious: Yes (Death, Life-Threatening, Hospitalization)
  Sender: FDA-Public Use
  Company Number: US-AMGEN LTD.-KDC407090

PATIENT

DRUGS (14)
  1. PANITUMUMAB [Suspect]
     Indication: COLORECTAL CANCER
     Dosage: 640 MG, Q2WK
     Route: 042
     Dates: start: 20100217, end: 20100331
  2. IRINOTECAN HCL [Suspect]
     Dosage: 330 MG, Q2WK
     Route: 042
     Dates: start: 20100217
  3. FLUOROURACIL [Suspect]
     Dosage: UNK UNK, Q2WK
     Route: 042
     Dates: start: 20100217
  4. FUROSEMIDE [Suspect]
     Dosage: 20 MG, QD
     Route: 048
     Dates: start: 20100402
  5. FOLINIC ACID [Concomitant]
     Dosage: 850 MG, Q2WK
     Route: 042
     Dates: start: 20100217, end: 20100331
  6. LOPERAMIDE HYDROCHLORIDE [Concomitant]
     Dosage: 2 MG, Q4H
     Route: 048
     Dates: start: 20100407
  7. POTASSIUM [Concomitant]
  8. MAGNESIUM [Concomitant]
  9. FERROUS SULFATE [Concomitant]
  10. MULTI-VITAMINS [Concomitant]
  11. LEVOTHYROXINE SODIUM [Concomitant]
  12. ASPIRIN [Concomitant]
  13. DOXYCYCLINE [Concomitant]
     Dosage: 100 MG, BID
     Dates: start: 20100217, end: 20100312
  14. CIPROFLOXACIN HYDROCHLORIDE [Concomitant]
     Dosage: 500 MG, BID
     Dates: start: 20100317, end: 20100319

REACTIONS (4)
  - CARDIOGENIC SHOCK [None]
  - CARDIOMYOPATHY [None]
  - DEHYDRATION [None]
  - RESPIRATORY FAILURE [None]
